FAERS Safety Report 6213283-2 (Version None)
Quarter: 2009Q2

REPORT INFORMATION
  Report Type: 
  Country: None (occurrence: None)
  Receive Date: 20090603
  Receipt Date: 20090525
  Transmission Date: 20091009
  Serious: Yes (Hospitalization)
  Sender: FDA-Public Use
  Company Number: JP-MERCK-0904USA03892

PATIENT
  Age: 42 Year
  Sex: Female

DRUGS (10)
  1. SINGULAIR [Suspect]
     Indication: ASTHMA
     Route: 048
     Dates: start: 20080501, end: 20080910
  2. ONON [Suspect]
     Indication: ASTHMA
     Route: 048
     Dates: start: 20080501, end: 20080910
  3. MUCOSERUM [Concomitant]
     Route: 048
     Dates: end: 20080910
  4. ASTOMATOP [Concomitant]
     Route: 048
     Dates: end: 20080910
  5. HUSCODE [Concomitant]
     Route: 048
     Dates: end: 20080910
  6. ADOAIR [Concomitant]
     Dates: end: 20080910
  7. EBASTINE [Concomitant]
     Route: 048
     Dates: end: 20080910
  8. KLARICID [Concomitant]
     Route: 048
     Dates: end: 20080910
  9. MUCODYNE [Concomitant]
     Route: 048
     Dates: end: 20080910
  10. CELESTAMINE [Concomitant]
     Route: 048
     Dates: end: 20080910

REACTIONS (1)
  - ALLERGIC GRANULOMATOUS ANGIITIS [None]
